FAERS Safety Report 20957401 (Version 1)
Quarter: 2022Q2

REPORT INFORMATION
  Report Type: Report from Study
  Country: US (occurrence: US)
  Receive Date: 20220614
  Receipt Date: 20220614
  Transmission Date: 20220721
  Serious: Yes (Other)
  Sender: FDA-Public Use
  Company Number: US-HLS-202200486

PATIENT
  Sex: Female

DRUGS (2)
  1. CLOZAPINE [Suspect]
     Active Substance: CLOZAPINE
     Route: 048
  2. CLOZAPINE [Suspect]
     Active Substance: CLOZAPINE
     Dosage: 50MG A.M./ 200MG P.M
     Route: 048

REACTIONS (6)
  - Fatigue [Unknown]
  - Constipation [Unknown]
  - Negative symptoms in schizophrenia [Unknown]
  - Psychotic disorder [Unknown]
  - Treatment noncompliance [Unknown]
  - Weight increased [Unknown]
